FAERS Safety Report 19898895 (Version 2)
Quarter: 2021Q4

REPORT INFORMATION
  Report Type: Report from Study
  Country: FR (occurrence: FR)
  Receive Date: 20210930
  Receipt Date: 20211011
  Transmission Date: 20220303
  Serious: No
  Sender: FDA-Public Use
  Company Number: FR-ROCHE-2921665

PATIENT
  Age: 59 Year
  Sex: Female
  Weight: 75 kg

DRUGS (4)
  1. ATEZOLIZUMAB [Suspect]
     Active Substance: ATEZOLIZUMAB
     Indication: Cervix carcinoma
     Dosage: ON 13/SEP/2021, MOST RECENT DOSE WAS ADMINISTERED.
     Route: 042
     Dates: start: 20210804
  2. BEVACIZUMAB [Suspect]
     Active Substance: BEVACIZUMAB
     Indication: Cervix carcinoma
     Dosage: ON 13/SEP/2021, MOST RECENT DOSE WAS ADMINISTERED.
     Route: 042
     Dates: start: 20210804
  3. CARBOPLATIN [Suspect]
     Active Substance: CARBOPLATIN
     Indication: Cervix carcinoma
     Dosage: ON 13/SEP/2021, MOST RECENT DOSE WAS ADMINISTERED.
     Route: 042
     Dates: start: 20210804
  4. PACLITAXEL [Suspect]
     Active Substance: PACLITAXEL
     Indication: Cervix carcinoma
     Dosage: ON 13/SEP/2021, MOST RECENT DOSE WAS ADMINISTERED.
     Route: 042
     Dates: start: 20210804

REACTIONS (1)
  - Hypertension [Recovered/Resolved]

NARRATIVE: CASE EVENT DATE: 20210913
